FAERS Safety Report 23155200 (Version 5)
Quarter: 2024Q1

REPORT INFORMATION
  Report Type: Spontaneous
  Country: US (occurrence: US)
  Receive Date: 20231107
  Receipt Date: 20240221
  Transmission Date: 20240409
  Serious: Yes (Hospitalization, Other)
  Sender: FDA-Public Use
  Company Number: US-SA-SAC20231027000386

PATIENT
  Age: 25 Year
  Sex: Male

DRUGS (3)
  1. DUPIXENT [Suspect]
     Active Substance: DUPILUMAB
     Indication: Psoriasis
     Dosage: 300 MG, QOW
     Route: 058
  2. DUPIXENT [Suspect]
     Active Substance: DUPILUMAB
     Indication: Dermatitis atopic
  3. SKYRIZI [Suspect]
     Active Substance: RISANKIZUMAB-RZAA
     Dosage: UNK

REACTIONS (14)
  - Autoimmune disorder [Unknown]
  - Multiple allergies [Recovering/Resolving]
  - Psoriatic arthropathy [Unknown]
  - Joint stiffness [Unknown]
  - Arthralgia [Unknown]
  - Sinus disorder [Recovering/Resolving]
  - Nausea [Unknown]
  - Vomiting [Unknown]
  - Oropharyngeal discomfort [Recovering/Resolving]
  - Abdominal pain upper [Unknown]
  - Pain [Recovering/Resolving]
  - Chills [Recovering/Resolving]
  - Body temperature increased [Recovering/Resolving]
  - Product use in unapproved indication [Unknown]

NARRATIVE: CASE EVENT DATE: 20231001
